FAERS Safety Report 5482543-5 (Version None)
Quarter: 2007Q4

REPORT INFORMATION
  Report Type: 
  Country: None (occurrence: None)
  Receive Date: 20071011
  Receipt Date: 20070913
  Transmission Date: 20080405
  Serious: Yes (Hospitalization)
  Sender: FDA-Public Use
  Company Number: A0661297A

PATIENT
  Age: 75 Year
  Sex: Female

DRUGS (5)
  1. TYKERB [Suspect]
     Indication: BREAST CANCER
     Dosage: 1250MG AT NIGHT
     Route: 048
     Dates: start: 20070629, end: 20070805
  2. XELODA [Suspect]
     Dates: end: 20070805
  3. HYDROCHLOROTHIAZIDE [Concomitant]
  4. TENORMIN [Concomitant]
  5. ACTONEL [Concomitant]

REACTIONS (5)
  - DEHYDRATION [None]
  - DIARRHOEA [None]
  - EATING DISORDER [None]
  - MOUTH ULCERATION [None]
  - NAUSEA [None]
